FAERS Safety Report 7912725-1 (Version None)
Quarter: 2011Q4

REPORT INFORMATION
  Report Type: 
  Country: None (occurrence: None)
  Receive Date: 20111114
  Receipt Date: 20111108
  Transmission Date: 20120403
  Serious: Yes (Other)
  Sender: FDA-Public Use
  Company Number: GB-PFIZER INC-2011238466

PATIENT
  Age: 30 Year
  Sex: Female

DRUGS (1)
  1. VARENICLINE TARTRATE [Suspect]
     Dosage: 1 MG, 2X/DAY
     Route: 048
     Dates: start: 20101220, end: 20110118

REACTIONS (7)
  - GASTROINTESTINAL DISORDER [None]
  - NAUSEA [None]
  - VISUAL IMPAIRMENT [None]
  - ABNORMAL DREAMS [None]
  - HEADACHE [None]
  - CONSTIPATION [None]
  - SOMNOLENCE [None]
